FAERS Safety Report 17580498 (Version 1)
Quarter: 2020Q1

REPORT INFORMATION
  Report Type: Spontaneous
  Country: US (occurrence: US)
  Receive Date: 20200320
  Receipt Date: 20200320
  Transmission Date: 20200409
  Serious: Yes (Hospitalization)
  Sender: FDA-Public Use
  Company Number: None

PATIENT
  Age: 68 Year
  Sex: Male
  Weight: 116 kg

DRUGS (1)
  1. DASATINIB (DASATINIB 100MG TAB) [Suspect]
     Active Substance: DASATINIB
     Indication: CHRONIC MYELOID LEUKAEMIA
     Route: 048
     Dates: start: 20180410, end: 20190605

REACTIONS (3)
  - Cough [None]
  - Pleural effusion [None]
  - Wheezing [None]

NARRATIVE: CASE EVENT DATE: 20190712
